FAERS Safety Report 7208373-1 (Version None)
Quarter: 2011Q1

REPORT INFORMATION
  Report Type: 
  Country: None (occurrence: None)
  Receive Date: 20110104
  Receipt Date: 20101223
  Transmission Date: 20110831
  Serious: Yes (Other)
  Sender: FDA-Public Use
  Company Number: PHHY2010DE88500

PATIENT
  Age: 62 Year
  Sex: Female

DRUGS (3)
  1. IMMUNOGLOBULINS [Concomitant]
     Dosage: 30 G DAILY
     Route: 042
  2. METHYLPREDNISOLONE [Concomitant]
     Dosage: 1 G,  DAILY
     Route: 042
  3. INTERFERON BETA-1B [Suspect]
     Indication: MULTIPLE SCLEROSIS
     Route: 058

REACTIONS (15)
  - GAIT DISTURBANCE [None]
  - METASTASIS [None]
  - CEREBELLAR SYNDROME [None]
  - HYPERREFLEXIA [None]
  - DYSPHAGIA [None]
  - PARANEOPLASTIC CEREBELLAR DEGENERATION [None]
  - LYMPHADENOPATHY [None]
  - NYSTAGMUS [None]
  - DYSARTHRIA [None]
  - PARESIS [None]
  - CEREBELLAR ATROPHY [None]
  - ATAXIA [None]
  - HYPOAESTHESIA [None]
  - NAUSEA [None]
  - VOMITING [None]
